FAERS Safety Report 9780788 (Version 1)
Quarter: 2013Q4

REPORT INFORMATION
  Report Type: Spontaneous
  Country: US (occurrence: US)
  Receive Date: 20131224
  Receipt Date: 20131224
  Transmission Date: 20140711
  Serious: No
  Sender: FDA-Public Use
  Company Number: US-009507513-1312USA009914

PATIENT
  Age: 62 Year
  Sex: Female

DRUGS (1)
  1. VICTRELIS [Suspect]
     Dosage: 800 MG, TID; 4 CAPSULES THREE TIMES A DAY.
     Route: 048
     Dates: start: 20131001

REACTIONS (3)
  - Dizziness [Unknown]
  - Rash [Unknown]
  - Fatigue [Unknown]
